FAERS Safety Report 17230187 (Version 1)
Quarter: 2020Q1

REPORT INFORMATION
  Report Type: Spontaneous
  Country: SE (occurrence: SE)
  Receive Date: 20200103
  Receipt Date: 20200103
  Transmission Date: 20200409
  Serious: Yes (Hospitalization)
  Sender: FDA-Public Use
  Company Number: SE-TEVA-2019-SE-1160522

PATIENT
  Age: 43 Year
  Sex: Female

DRUGS (4)
  1. ZOLPIDEM [Suspect]
     Active Substance: ZOLPIDEM TARTRATE
     Dosage: 100 MG
     Route: 048
     Dates: start: 20180517, end: 20180517
  2. PROPAVAN [Suspect]
     Active Substance: PROPIOMAZINE
     Dosage: 500 MG
     Route: 048
     Dates: start: 20180517, end: 20180517
  3. OXASCAND [Suspect]
     Active Substance: OXAZEPAM
     Dosage: 300 MG
     Route: 048
     Dates: start: 20180517, end: 20180517
  4. CYMBALTA [Concomitant]
     Active Substance: DULOXETINE HYDROCHLORIDE

REACTIONS (5)
  - Maternal exposure during pregnancy [Unknown]
  - Intentional overdose [Unknown]
  - Hypotension [Unknown]
  - Intentional self-injury [Unknown]
  - Snoring [Unknown]

NARRATIVE: CASE EVENT DATE: 20180517
